FAERS Safety Report 14106768 (Version 1)
Quarter: 2017Q4

REPORT INFORMATION
  Report Type: Spontaneous
  Country: FR (occurrence: FR)
  Receive Date: 20171019
  Receipt Date: 20171019
  Transmission Date: 20180321
  Serious: Yes (Other)
  Sender: FDA-Public Use
  Company Number: FR-MERCK KGAA-2030658

PATIENT
  Age: 62 Year
  Sex: Female

DRUGS (1)
  1. NOVOTHYROX [Suspect]
     Active Substance: LEVOTHYROXINE SODIUM
     Indication: PRODUCT USED FOR UNKNOWN INDICATION
     Route: 048
     Dates: start: 20170418

REACTIONS (7)
  - Muscular weakness [Unknown]
  - Fatigue [Unknown]
  - Irritability [Unknown]
  - Palpitations [Unknown]
  - Arthralgia [Unknown]
  - Blood thyroid stimulating hormone normal [Recovered/Resolved]
  - Hot flush [Unknown]

NARRATIVE: CASE EVENT DATE: 20170501
